FAERS Safety Report 18455794 (Version 1)
Quarter: 2020Q4

REPORT INFORMATION
  Report Type: Other
  Country: US (occurrence: US)
  Receive Date: 20201102
  Receipt Date: 20201102
  Transmission Date: 20210114
  Serious: Yes (Other)
  Sender: FDA-Public Use
  Company Number: US-ROCHE-2705662

PATIENT
  Age: 53 Year
  Sex: Female

DRUGS (6)
  1. OMALIZUMAB. [Suspect]
     Active Substance: OMALIZUMAB
     Indication: IDIOPATHIC ANGIOEDEMA
     Route: 065
  2. CYCLOSPORINE. [Suspect]
     Active Substance: CYCLOSPORINE
     Indication: IDIOPATHIC ANGIOEDEMA
     Route: 065
  3. ICATIBANT [Suspect]
     Active Substance: ICATIBANT ACETATE
     Indication: IDIOPATHIC ANGIOEDEMA
     Route: 065
  4. MYCOPHENOLATE MOFETIL. [Suspect]
     Active Substance: MYCOPHENOLATE MOFETIL
     Indication: IDIOPATHIC ANGIOEDEMA
     Dosage: UNK
     Route: 065
  5. PREDNISONE. [Suspect]
     Active Substance: PREDNISONE
     Indication: IDIOPATHIC ANGIOEDEMA
     Route: 065
  6. LANADELUMAB [Suspect]
     Active Substance: LANADELUMAB
     Indication: IDIOPATHIC ANGIOEDEMA
     Route: 065

REACTIONS (3)
  - Off label use [Unknown]
  - Idiopathic angioedema [Recovering/Resolving]
  - Intentional product use issue [Unknown]
